FAERS Safety Report 4324821-9 (Version None)
Quarter: 2004Q1

REPORT INFORMATION
  Report Type: 
  Country: None (occurrence: None)
  Receive Date: 20040325
  Receipt Date: 20040325
  Transmission Date: 20041129
  Serious: Yes (Disabling)
  Sender: FDA-Public Use
  Company Number: None

PATIENT
  Age: 36 Year
  Sex: Male
  Weight: 120.2032 kg

DRUGS (3)
  1. ZOLOFT [Suspect]
     Indication: DEPRESSION
     Dosage: 50 AND 100 MG 1 DAILY
     Dates: start: 20031101, end: 20040324
  2. ZOLOFT [Suspect]
     Indication: PANIC ATTACK
     Dosage: 50 AND 100 MG 1 DAILY
     Dates: start: 20031101, end: 20040324
  3. ZOLOFT [Suspect]
     Indication: POST-TRAUMATIC STRESS DISORDER
     Dosage: 50 AND 100 MG 1 DAILY
     Dates: start: 20031101, end: 20040324

REACTIONS (10)
  - ABNORMAL BEHAVIOUR [None]
  - AGITATION [None]
  - ANXIETY [None]
  - DEPRESSED MOOD [None]
  - EYE PAIN [None]
  - FEELING ABNORMAL [None]
  - FEELING HOT [None]
  - HOMICIDAL IDEATION [None]
  - IRRITABILITY [None]
  - OVERDOSE [None]
